FAERS Safety Report 9303793 (Version 1)
Quarter: 2013Q2

REPORT INFORMATION
  Report Type: Spontaneous
  Country: US (occurrence: US)
  Receive Date: 20130522
  Receipt Date: 20130522
  Transmission Date: 20140414
  Serious: Yes (Other)
  Sender: FDA-Public Use
  Company Number: US-GLAXOSMITHKLINE-A1024311A

PATIENT
  Sex: 0

DRUGS (1)
  1. POTIGA [Suspect]
     Route: 065

REACTIONS (3)
  - Convulsion [Unknown]
  - Palpitations [Unknown]
  - Blepharospasm [Unknown]
